FAERS Safety Report 6474990-X (Version None)
Quarter: 2009Q4

REPORT INFORMATION
  Report Type: 
  Country: None (occurrence: None)
  Receive Date: 20091204
  Receipt Date: 20090427
  Transmission Date: 20100525
  Serious: Yes (Hospitalization)
  Sender: FDA-Public Use
  Company Number: AR-ELI_LILLY_AND_COMPANY-AR200904001304

PATIENT
  Age: 70 Year
  Sex: Male

DRUGS (2)
  1. ZYPREXA [Suspect]
     Indication: AGGRESSION
     Dosage: 10 MG, UNK
     Route: 048
     Dates: start: 20070101, end: 20090101
  2. ZYPREXA [Suspect]
     Dosage: 5 MG, DAILY (1/D)
     Route: 065
     Dates: start: 20090101, end: 20090101

REACTIONS (6)
  - BRAIN SCAN ABNORMAL [None]
  - DEPRESSION [None]
  - DIABETES MELLITUS [None]
  - GENERAL PHYSICAL HEALTH DETERIORATION [None]
  - INCONTINENCE [None]
  - METABOLIC SYNDROME [None]
